FAERS Safety Report 16919493 (Version 1)
Quarter: 2019Q4

REPORT INFORMATION
  Report Type: Report from Study
  Country: KE (occurrence: KE)
  Receive Date: 20191015
  Receipt Date: 20191015
  Transmission Date: 20200122
  Serious: Yes (Death)
  Sender: FDA-Public Use
  Company Number: KE-PFIZER INC-2019442874

PATIENT
  Age: 61 Year
  Sex: Female

DRUGS (1)
  1. SUTENT [Suspect]
     Active Substance: SUNITINIB MALATE
     Indication: GASTROINTESTINAL STROMAL TUMOUR
     Dosage: 50 MG (1X50MG TABLET)

REACTIONS (1)
  - Death [Fatal]

NARRATIVE: CASE EVENT DATE: 20191005
